FAERS Safety Report 15341961 (Version 1)
Quarter: 2018Q3

REPORT INFORMATION
  Report Type: Spontaneous
  Country: US (occurrence: US)
  Receive Date: 20180828
  Receipt Date: 20180828
  Transmission Date: 20181010
  Serious: Yes (Life-Threatening, Hospitalization, Other)
  Sender: FDA-Public Use
  Company Number: None

PATIENT
  Age: 84 Year
  Weight: 117 kg

DRUGS (18)
  1. ZOLOFT [Concomitant]
     Active Substance: SERTRALINE HYDROCHLORIDE
  2. PRO?RENAL + D NEPHRO VITE [Concomitant]
  3. LOSARTAN. [Concomitant]
     Active Substance: LOSARTAN
  4. METOPROLOL TARTRATE. [Concomitant]
     Active Substance: METOPROLOL TARTRATE
  5. CLOPIDOGREL/PLAVIX [Concomitant]
  6. CINICALET/SENSIPAR [Concomitant]
  7. VITAMIN D3 [Concomitant]
     Active Substance: CHOLECALCIFEROL
  8. HUMALOG [Concomitant]
     Active Substance: INSULIN LISPRO
  9. GABAPENTIN. [Concomitant]
     Active Substance: GABAPENTIN
  10. RENVELA [Concomitant]
     Active Substance: SEVELAMER CARBONATE
  11. ATORVASTATIN [Concomitant]
     Active Substance: ATORVASTATIN
  12. LORAZEPAM. [Concomitant]
     Active Substance: LORAZEPAM
  13. VALACYCLOVIR HCL, 1 GM [Suspect]
     Active Substance: VALACYCLOVIR HYDROCHLORIDE
     Indication: HERPES ZOSTER
     Dosage: ?          QUANTITY:1 TABLET(S);?
     Route: 048
     Dates: start: 20180817, end: 20180819
  14. ASPIRIN. [Concomitant]
     Active Substance: ASPIRIN
  15. FLUTICASONE PROPIONATE. [Concomitant]
     Active Substance: FLUTICASONE PROPIONATE
  16. ELIQUIS [Suspect]
     Active Substance: APIXABAN
  17. PANTOPRAZOLE [Concomitant]
     Active Substance: PANTOPRAZOLE
  18. CALC.ACETATE [Concomitant]

REACTIONS (4)
  - Dysarthria [None]
  - Drug hypersensitivity [None]
  - Fine motor skill dysfunction [None]
  - Incoherent [None]

NARRATIVE: CASE EVENT DATE: 20180817
